FAERS Safety Report 4864476-8 (Version None)
Quarter: 2005Q4

REPORT INFORMATION
  Report Type: 
  Country: None (occurrence: None)
  Receive Date: 20051222
  Receipt Date: 20051124
  Transmission Date: 20060501
  Serious: Yes (Other)
  Sender: FDA-Public Use
  Company Number: HU-BRISTOL-MYERS SQUIBB COMPANY-13196621

PATIENT
  Age: 58 Year
  Sex: Male

DRUGS (4)
  1. DUOPRIL TABS [Suspect]
     Indication: HYPERTENSION
     Route: 048
     Dates: start: 20051001
  2. MINIPRESS [Concomitant]
  3. MONOPRIL [Concomitant]
  4. CARDILOPIN [Concomitant]

REACTIONS (2)
  - ANAPHYLACTIC REACTION [None]
  - GOUT [None]
